FAERS Safety Report 26085082 (Version 1)
Quarter: 2025Q4

REPORT INFORMATION
  Report Type: Report from Study
  Country: MA (occurrence: MA)
  Receive Date: 20251125
  Receipt Date: 20251125
  Transmission Date: 20260117
  Serious: Yes (Other)
  Sender: ROCHE
  Company Number: MA-ROCHE-10000443363

PATIENT

DRUGS (3)
  1. RITUXIMAB [Suspect]
     Active Substance: RITUXIMAB
     Indication: Pemphigus
     Route: 065
  2. DAPSONE [Suspect]
     Active Substance: DAPSONE
     Indication: Pemphigus
     Route: 065
  3. AZATHIOPRINE [Suspect]
     Active Substance: AZATHIOPRINE
     Indication: Pemphigus
     Route: 065

REACTIONS (1)
  - Septic shock [Unknown]
